FAERS Safety Report 10662319 (Version 2)
Quarter: 2014Q4

REPORT INFORMATION
  Report Type: Spontaneous
  Country: US (occurrence: US)
  Receive Date: 20141218
  Receipt Date: 20141229
  Transmission Date: 20150529
  Serious: No
  Sender: FDA-Public Use
  Company Number: US-JNJFOC-20141212836

PATIENT
  Age: 68 Year
  Sex: Male

DRUGS (1)
  1. IMBRUVICA [Suspect]
     Active Substance: IBRUTINIB
     Indication: MANTLE CELL LYMPHOMA
     Route: 048
     Dates: start: 20141103

REACTIONS (7)
  - Upper respiratory tract infection [Recovered/Resolved]
  - Haemoptysis [Recovered/Resolved]
  - Arthralgia [Unknown]
  - Epistaxis [Unknown]
  - Muscle spasms [Unknown]
  - Fatigue [Unknown]
  - Abdominal discomfort [Unknown]

NARRATIVE: CASE EVENT DATE: 2014
